FAERS Safety Report 5109652-4 (Version None)
Quarter: 2006Q3

REPORT INFORMATION
  Report Type: 
  Country: None (occurrence: None)
  Receive Date: 20060920
  Receipt Date: 20060918
  Transmission Date: 20061208
  Serious: Yes (Other)
  Sender: FDA-Public Use
  Company Number: AU-MERCK-0609AUS00133

PATIENT
  Age: 55 Year
  Sex: Male

DRUGS (7)
  1. VYTORIN [Suspect]
     Route: 065
  2. PHENYTOIN [Suspect]
     Route: 065
  3. PRIMIDONE [Suspect]
     Route: 065
  4. LAMOTRIGINE [Suspect]
     Route: 065
  5. ASPIRIN [Concomitant]
     Route: 065
  6. ATENOLOL [Concomitant]
     Route: 065
  7. ISOSORBIDE MONONITRATE [Concomitant]
     Route: 065

REACTIONS (3)
  - ANTICONVULSANT DRUG LEVEL DECREASED [None]
  - CONVULSION [None]
  - DRUG INTERACTION [None]
